FAERS Safety Report 5703673-6 (Version None)
Quarter: 2008Q2

REPORT INFORMATION
  Report Type: 
  Country: None (occurrence: None)
  Receive Date: 20080413
  Receipt Date: 20080403
  Transmission Date: 20081010
  Serious: Yes (Other)
  Sender: FDA-Public Use
  Company Number: PHHY2008JP04881

PATIENT

DRUGS (1)
  1. SANDOSTATIN LAR [Suspect]
     Indication: ACROMEGALY
     Dosage: 20 MG/DAY
     Route: 030
     Dates: end: 20080301

REACTIONS (2)
  - CONCOMITANT DISEASE AGGRAVATED [None]
  - DIABETIC NEPHROPATHY [None]
